FAERS Safety Report 20279521 (Version 1)
Quarter: 2022Q1

REPORT INFORMATION
  Report Type: Report from Study
  Country: CA (occurrence: CA)
  Receive Date: 20220103
  Receipt Date: 20220103
  Transmission Date: 20220424
  Serious: Yes (Death)
  Sender: FDA-Public Use
  Company Number: CA-BEH-2021140033

PATIENT
  Age: 57 Year
  Sex: Female
  Weight: 39.5 kg

DRUGS (1)
  1. HIZENTRA [Suspect]
     Active Substance: HUMAN IMMUNOGLOBULIN G
     Indication: Secondary immunodeficiency
     Dosage: 4 GRAM, QW
     Route: 050
     Dates: start: 20191231

REACTIONS (1)
  - Death [Fatal]

NARRATIVE: CASE EVENT DATE: 20211223
